FAERS Safety Report 6551903-3 (Version None)
Quarter: 2010Q1

REPORT INFORMATION
  Report Type: 
  Country: None (occurrence: None)
  Receive Date: 20100126
  Receipt Date: 20100118
  Transmission Date: 20100710
  Serious: Yes (Hospitalization)
  Sender: FDA-Public Use
  Company Number: JP-B.I. PHARMACEUTICALS,INC./RIDGEFIELD-2010-BP-00551NB

PATIENT
  Age: 77 Year
  Sex: Male

DRUGS (2)
  1. MICARDIS [Suspect]
     Dosage: 80 MG
     Route: 048
  2. PLAVIX [Suspect]
     Route: 048

REACTIONS (1)
  - PANCREATITIS [None]
